FAERS Safety Report 16750092 (Version 1)
Quarter: 2019Q3

REPORT INFORMATION
  Report Type: Spontaneous
  Country: BR (occurrence: BR)
  Receive Date: 20190828
  Receipt Date: 20190828
  Transmission Date: 20191005
  Serious: Yes (Death, Other)
  Sender: FDA-Public Use
  Company Number: BR-ROCHE-2388178

PATIENT
  Age: 54 Year
  Weight: 95.9 kg

DRUGS (7)
  1. ACTILYSE [Suspect]
     Active Substance: ALTEPLASE
     Indication: ISCHAEMIC STROKE
     Dosage: 9 MG + 10 ML OF SALINE 0.9% IN BOLUS (9
     Route: 065
     Dates: start: 20190228, end: 20190228
  2. CAPTOPRIL. [Concomitant]
     Active Substance: CAPTOPRIL
  3. FUROSEMIDA [FUROSEMIDE] [Concomitant]
     Active Substance: FUROSEMIDE
  4. FENOBARBITAL [Concomitant]
     Active Substance: PHENOBARBITAL
  5. ATENOLOL. [Concomitant]
     Active Substance: ATENOLOL
  6. AMIODARONA [AMIODARONE] [Concomitant]
     Active Substance: AMIODARONE
  7. AAS [Concomitant]
     Active Substance: ASPIRIN

REACTIONS (6)
  - Macroglossia [Not Recovered/Not Resolved]
  - Bronchospasm [Not Recovered/Not Resolved]
  - Death [Fatal]
  - Cardio-respiratory arrest [Recovered/Resolved]
  - Papule [Not Recovered/Not Resolved]
  - Pulseless electrical activity [Recovered/Resolved]

NARRATIVE: CASE EVENT DATE: 20190228
